FAERS Safety Report 18312244 (Version 1)
Quarter: 2020Q3

REPORT INFORMATION
  Report Type: Report from Study
  Country: GB (occurrence: GB)
  Receive Date: 20200925
  Receipt Date: 20200925
  Transmission Date: 20201103
  Serious: Yes (Other)
  Sender: FDA-Public Use
  Company Number: NVSC2020GB154067

PATIENT
  Sex: Female

DRUGS (2)
  1. HYRIMOZ [Suspect]
     Active Substance: ADALIMUMAB-ADAZ
     Indication: RHEUMATOID ARTHRITIS
     Dosage: UNK (40MG/0.8ML EOW)
     Route: 065
     Dates: start: 20200323
  2. HYRIMOZ [Suspect]
     Active Substance: ADALIMUMAB-ADAZ
     Dosage: 40 MG, Q2W (RHEUMATOID ARTHRITIS)
     Route: 065
     Dates: start: 20200323

REACTIONS (9)
  - Contusion [Unknown]
  - General physical health deterioration [Unknown]
  - Weight decreased [Unknown]
  - Malformation biliary [Unknown]
  - Fatigue [Unknown]
  - Limb discomfort [Unknown]
  - Pain [Recovering/Resolving]
  - Weight increased [Unknown]
  - Tenderness [Unknown]
